FAERS Safety Report 6698497-X (Version None)
Quarter: 2010Q2

REPORT INFORMATION
  Report Type: 
  Country: None (occurrence: None)
  Receive Date: 20100427
  Receipt Date: 20100420
  Transmission Date: 20101027
  Serious: Yes (Other)
  Sender: FDA-Public Use
  Company Number: US-SANOFI-AVENTIS-200919303US

PATIENT
  Age: 49 Year
  Sex: Female

DRUGS (1)
  1. INSULIN GLARGINE [Suspect]
     Dosage: DOSE AS USED: 18-25 U
     Route: 058
     Dates: start: 20090801, end: 20091002

REACTIONS (2)
  - DRUG EXPOSURE DURING PREGNANCY [None]
  - RETINAL HAEMORRHAGE [None]
